FAERS Safety Report 6226020-2 (Version None)
Quarter: 2009Q2

REPORT INFORMATION
  Report Type: 
  Country: None (occurrence: None)
  Receive Date: 20090612
  Receipt Date: 20090604
  Transmission Date: 20091009
  Serious: Yes (Death, Hospitalization)
  Sender: FDA-Public Use
  Company Number: NL-TEVA-197270ISR

PATIENT
  Age: 63 Year
  Sex: Female

DRUGS (9)
  1. FUROSEMIDE [Suspect]
  2. DIGOXIN [Suspect]
  3. ENALAPRIL [Concomitant]
  4. ISOSORBIDE DINITRATE [Concomitant]
  5. METFORMIN HYDROCHLORIDE [Concomitant]
  6. CIMETIDINE [Concomitant]
  7. GAVISCON [Concomitant]
  8. FERROUS FUMARATE [Concomitant]
  9. BISACODYL [Concomitant]

REACTIONS (2)
  - CARDIAC ARREST [None]
  - DRUG TOXICITY [None]
